FAERS Safety Report 9821519 (Version 4)
Quarter: 2014Q1

REPORT INFORMATION
  Report Type: Report from Study
  Country: DE (occurrence: DE)
  Receive Date: 20140116
  Receipt Date: 20140214
  Transmission Date: 20141002
  Serious: Yes (Hospitalization)
  Sender: FDA-Public Use
  Company Number: DE-AMGEN-DEUCT2013088087

PATIENT
  Age: 44 Year
  Sex: Female
  Weight: 63 kg

DRUGS (2)
  1. ETANERCEPT [Suspect]
     Indication: PSORIATIC ARTHROPATHY
     Dosage: 50 MG, WEEKLY
     Route: 058
     Dates: start: 20130619, end: 20131112
  2. METEX                              /00113802/ [Concomitant]
     Dosage: 15 MG, UNK
     Route: 058
     Dates: start: 20130513

REACTIONS (1)
  - Psoriatic arthropathy [Recovered/Resolved]
